FAERS Safety Report 8500122-X (Version None)
Quarter: 2012Q3

REPORT INFORMATION
  Report Type: 
  Country: None (occurrence: None)
  Receive Date: 20120710
  Receipt Date: 20120627
  Transmission Date: 20120928
  Serious: Yes (Hospitalization, Other)
  Sender: FDA-Public Use
  Company Number: JP-PFIZER INC-2012157843

PATIENT
  Age: 78 Year
  Sex: Male

DRUGS (3)
  1. CELEBREX [Suspect]
     Indication: RHEUMATOID ARTHRITIS
     Dosage: 200 MG, UID
     Route: 048
     Dates: start: 20120416, end: 20120615
  2. REBAMIPIDE [Concomitant]
     Dosage: UNK
     Dates: start: 20110806
  3. PREDNISOLONE [Concomitant]
     Dosage: UNK
     Dates: start: 20120128

REACTIONS (2)
  - ATRIAL FIBRILLATION [None]
  - INTENTIONAL DRUG MISUSE [None]
